FAERS Safety Report 6157351-2 (Version None)
Quarter: 2009Q2

REPORT INFORMATION
  Report Type: 
  Country: None (occurrence: None)
  Receive Date: 20090413
  Receipt Date: 20090401
  Transmission Date: 20091009
  Serious: Yes (Death, Hospitalization)
  Sender: FDA-Public Use
  Company Number: JP-2009-0325

PATIENT
  Age: 49 Year
  Sex: Female

DRUGS (10)
  1. NAVELBINE [Suspect]
     Indication: BREAST CANCER
     Dosage: 30 MG/M2 IV
     Route: 042
     Dates: start: 20070404, end: 20070411
  2. LOXONIN. MFR: NOT SPECIFIED [Concomitant]
  3. AMLODIN [Concomitant]
  4. BLOPRESS. MFR: NOT SPECIFIED [Concomitant]
  5. MAGLAX. MFR: NOT SPECIFIED [Concomitant]
  6. OMEPRAL [Concomitant]
  7. TOFRANIL. MFR: NOT SPECIFIED [Concomitant]
  8. ONEALFA. MFR: NOT SPECIFIED [Concomitant]
  9. CALCIUM LACTATE [Concomitant]
  10. OXYCONTIN [Concomitant]

REACTIONS (3)
  - CARDIAC FAILURE [None]
  - PALPITATIONS [None]
  - PULMONARY CONGESTION [None]
